FAERS Safety Report 25660722 (Version 1)
Quarter: 2025Q3

REPORT INFORMATION
  Report Type: Spontaneous
  Country: US (occurrence: US)
  Receive Date: 20250808
  Receipt Date: 20250808
  Transmission Date: 20251020
  Serious: Yes (Hospitalization)
  Sender: INCYTE
  Company Number: US-INCYTE CORPORATION-2025IN008675

PATIENT
  Age: 44 Year

DRUGS (1)
  1. JAKAFI [Suspect]
     Active Substance: RUXOLITINIB
     Indication: Product used for unknown indication
     Dosage: 10 MILLIGRAM, BID

REACTIONS (5)
  - Dehydration [Unknown]
  - Abdominal discomfort [Unknown]
  - Decreased appetite [Unknown]
  - Constipation [Unknown]
  - Vomiting [Unknown]
